FAERS Safety Report 25418839 (Version 2)
Quarter: 2025Q3

REPORT INFORMATION
  Report Type: Spontaneous
  Country: CA (occurrence: CA)
  Receive Date: 20250610
  Receipt Date: 20250711
  Transmission Date: 20251021
  Serious: Yes (Other)
  Sender: PFIZER
  Company Number: CA-PFIZER INC-PV202500066487

PATIENT
  Age: 21 Year
  Sex: Female

DRUGS (1)
  1. DEPO-PROVERA [Suspect]
     Active Substance: MEDROXYPROGESTERONE ACETATE
     Indication: Contraception
     Dosage: 150 MG, EVERY 3 MONTHS
     Route: 030
     Dates: start: 20250602

REACTIONS (5)
  - Syncope [Recovered/Resolved]
  - Vision blurred [Recovered/Resolved]
  - Device delivery system issue [Unknown]
  - Device mechanical issue [Unknown]
  - Needle issue [Unknown]

NARRATIVE: CASE EVENT DATE: 20250602
